FAERS Safety Report 11162300 (Version 1)
Quarter: 2015Q2

REPORT INFORMATION
  Report Type: Spontaneous
  Country: US (occurrence: None)
  Receive Date: 20150603
  Receipt Date: 20150603
  Transmission Date: 20150821
  Serious: Yes (Other)
  Sender: FDA-Public Use
  Company Number: None

PATIENT
  Age: 74 Year
  Sex: Male
  Weight: 81.65 kg

DRUGS (24)
  1. GLUCOSAMINE/CHONDROITIN [Concomitant]
  2. ZINC [Concomitant]
     Active Substance: ZINC\ZINC CHLORIDE
  3. B VITS [Concomitant]
  4. GINKGO [Concomitant]
     Active Substance: GINKGO
  5. ALBUTEROL SULFATE. [Concomitant]
     Active Substance: ALBUTEROL SULFATE
  6. IPRATROPIUM BROMIDE. [Concomitant]
     Active Substance: IPRATROPIUM BROMIDE
  7. ASPIRIN. [Concomitant]
     Active Substance: ASPIRIN
  8. FLAXSEED [Concomitant]
     Active Substance: FLAX SEED
  9. SAW PALMETTO [Concomitant]
     Active Substance: SAW PALMETTO
  10. MAGNESIUM [Concomitant]
     Active Substance: MAGNESIUM
  11. VITAMIN E [Concomitant]
     Active Substance: .ALPHA.-TOCOPHEROL
  12. HAWTHORNE [Concomitant]
  13. STINGING NETTLES [Concomitant]
  14. BUDESONIDE. [Concomitant]
     Active Substance: BUDESONIDE
  15. NEBULIZER [Concomitant]
     Active Substance: UNSPECIFIED INGREDIENT
  16. MULTI-VITS [Concomitant]
  17. MUSINEX [Concomitant]
  18. ZYRTEC [Concomitant]
     Active Substance: CETIRIZINE HYDROCHLORIDE
  19. AMLODIPINE BESYLATE. [Concomitant]
     Active Substance: AMLODIPINE BESYLATE
  20. VITAMIN C [Concomitant]
     Active Substance: ASCORBIC ACID
  21. ATORVASTATIN CALCIUM. [Suspect]
     Active Substance: ATORVASTATIN CALCIUM
     Indication: BLOOD CHOLESTEROL ABNORMAL
     Route: 048
     Dates: start: 20150428, end: 20150428
  22. SELENIUM [Concomitant]
     Active Substance: SELENIUM
  23. POTASSIUM [Concomitant]
     Active Substance: POTASSIUM
  24. CALCIUM [Concomitant]
     Active Substance: CALCIUM

REACTIONS (2)
  - Abdominal pain upper [None]
  - Asthma [None]

NARRATIVE: CASE EVENT DATE: 20150427
